FAERS Safety Report 13763661 (Version 2)
Quarter: 2017Q4

REPORT INFORMATION
  Report Type: Spontaneous
  Country: BR (occurrence: BR)
  Receive Date: 20170718
  Receipt Date: 20171002
  Transmission Date: 20180320
  Serious: Yes (Other)
  Sender: FDA-Public Use
  Company Number: BR-ALEXION-A201708019

PATIENT
  Age: 6 Year
  Sex: Male

DRUGS (2)
  1. SOLIRIS [Suspect]
     Active Substance: ECULIZUMAB
     Indication: HAEMOLYTIC URAEMIC SYNDROME
     Dosage: UNK
     Route: 042
  2. SOLIRIS [Suspect]
     Active Substance: ECULIZUMAB
     Dosage: UNK
     Route: 065

REACTIONS (5)
  - Blood disorder [Recovered/Resolved]
  - Renal impairment [Recovered/Resolved]
  - Blood urea abnormal [Unknown]
  - Thrombotic microangiopathy [Unknown]
  - Inappropriate schedule of drug administration [Recovered/Resolved]
